FAERS Safety Report 6770468-4 (Version None)
Quarter: 2010Q2

REPORT INFORMATION
  Report Type: 
  Country: None (occurrence: None)
  Receive Date: 20100615
  Receipt Date: 20100408
  Transmission Date: 20101027
  Serious: Yes (Other)
  Sender: FDA-Public Use
  Company Number: FR-PFIZER INC-2010073919

PATIENT
  Sex: Female

DRUGS (3)
  1. XANAX [Suspect]
     Indication: DEPRESSION
     Dosage: UNK
     Dates: start: 20090626
  2. TRANXENE [Suspect]
     Dosage: UNK
     Dates: start: 20090626
  3. DAFALGAN CODEINE [Suspect]
     Dosage: UNK
     Dates: start: 20090626

REACTIONS (1)
  - SUICIDE ATTEMPT [None]
